FAERS Safety Report 5826770-3 (Version None)
Quarter: 2008Q3

REPORT INFORMATION
  Report Type: 
  Country: None (occurrence: None)
  Receive Date: 20080728
  Receipt Date: 20080728
  Transmission Date: 20090109
  Serious: Yes (Life-Threatening, Hospitalization)
  Sender: FDA-Public Use
  Company Number: None

PATIENT
  Age: 63 Year
  Sex: Male
  Weight: 79 kg

DRUGS (2)
  1. KALETRA [Suspect]
     Indication: HIV INFECTION
     Dosage: 2 TABS BID PO
     Route: 048
  2. EPZICOM [Suspect]
     Indication: HIV INFECTION
     Dosage: 1 TABL QD PO
     Route: 048

REACTIONS (3)
  - CIRCULATORY COLLAPSE [None]
  - LIVER DISORDER [None]
  - RENAL IMPAIRMENT [None]
